FAERS Safety Report 13922406 (Version 1)
Quarter: 2017Q3

REPORT INFORMATION
  Report Type: Report from Study
  Country: JP (occurrence: JP)
  Receive Date: 20170830
  Receipt Date: 20170830
  Transmission Date: 20171127
  Serious: Yes (Hospitalization, Other)
  Sender: FDA-Public Use
  Company Number: PHHY2010JP098375

PATIENT
  Age: 12 Year
  Sex: Male
  Weight: 45 kg

DRUGS (27)
  1. LASTET [Suspect]
     Active Substance: ETOPOSIDE
     Indication: PRODUCT USED FOR UNKNOWN INDICATION
     Dosage: 75 MG/M2,
     Route: 065
     Dates: start: 20090627, end: 20090701
  2. LEUNASE [Suspect]
     Active Substance: ASPARAGINASE
     Dosage: 6000 KIU, QD
     Route: 041
     Dates: start: 20090801, end: 20090801
  3. ZOSYN [Concomitant]
     Active Substance: PIPERACILLIN SODIUM\TAZOBACTAM SODIUM
     Indication: INFECTION
     Route: 051
     Dates: start: 20090527, end: 20090630
  4. SOLITA-T1 [Concomitant]
     Indication: FLUID REPLACEMENT
     Route: 041
     Dates: start: 20090529, end: 20090808
  5. LASTET [Suspect]
     Active Substance: ETOPOSIDE
     Dosage: 75 MG/M2,
     Route: 065
     Dates: start: 20090815, end: 20090821
  6. VINCRISTINE SULFATE. [Concomitant]
     Active Substance: VINCRISTINE SULFATE
     Indication: NEOPLASM MALIGNANT
     Route: 042
     Dates: start: 20090508, end: 20090508
  7. ATROPINE. [Concomitant]
     Active Substance: ATROPINE
     Indication: SEDATION
     Route: 051
     Dates: start: 20090529, end: 20090803
  8. ARRANON [Suspect]
     Active Substance: NELARABINE
     Dosage: 650 MG/M2, QD
     Route: 041
     Dates: start: 20090626, end: 20090630
  9. CYCLOPHOSPHAMIDE. [Suspect]
     Active Substance: CYCLOPHOSPHAMIDE
     Indication: PRODUCT USED FOR UNKNOWN INDICATION
     Route: 065
  10. LEUNASE [Suspect]
     Active Substance: ASPARAGINASE
     Dosage: 6000 KIU, QD
     Route: 041
     Dates: start: 20090804, end: 20090804
  11. PROTEAMIN 12X [Concomitant]
     Indication: FLUID REPLACEMENT
     Route: 041
     Dates: start: 20090626, end: 20090831
  12. PIRARUBICIN HYDROCHLORIDE [Concomitant]
     Active Substance: PIRARUBICIN HYDROCHLORIDE
     Indication: NEOPLASM MALIGNANT
     Route: 051
     Dates: start: 20090508, end: 20090508
  13. GRANISETRON [Concomitant]
     Active Substance: GRANISETRON
     Indication: NAUSEA
     Route: 042
     Dates: start: 20090530, end: 20090831
  14. ARRANON [Suspect]
     Active Substance: NELARABINE
     Indication: T-CELL TYPE ACUTE LEUKAEMIA
     Dosage: 650 MG/M2, QD
     Route: 041
     Dates: start: 20090530, end: 20090603
  15. LEUNASE [Suspect]
     Active Substance: ASPARAGINASE
     Indication: PRODUCT USED FOR UNKNOWN INDICATION
     Dosage: 6000 KIU, QOD
     Route: 041
     Dates: start: 20090613, end: 20090617
  16. DORMICUM (MIDAZOLAM HYDROCHLORIDE) [Concomitant]
     Active Substance: MIDAZOLAM HYDROCHLORIDE
     Indication: SEDATION
     Route: 051
     Dates: start: 20090529, end: 20090803
  17. LEUNASE [Suspect]
     Active Substance: ASPARAGINASE
     Dosage: 6000 KIU, QOD
     Route: 041
     Dates: start: 20090620, end: 20090624
  18. LEUNASE [Suspect]
     Active Substance: ASPARAGINASE
     Dosage: 6000 KIU, QD
     Route: 041
     Dates: start: 20090725, end: 20090725
  19. CYLOCIDE [Suspect]
     Active Substance: CYTARABINE
     Indication: PRODUCT USED FOR UNKNOWN INDICATION
     Dosage: 75 MG/M2,
     Route: 051
     Dates: start: 20090726, end: 20090729
  20. ARRANON [Suspect]
     Active Substance: NELARABINE
     Dosage: 650 MG/M2, QD
     Route: 041
     Dates: start: 20090718, end: 20090722
  21. LEUNASE [Suspect]
     Active Substance: ASPARAGINASE
     Dosage: 6000 KIU, QD
     Route: 041
     Dates: start: 20090728, end: 20090728
  22. PREDNISOLONE. [Concomitant]
     Active Substance: PREDNISOLONE
     Indication: NEOPLASM MALIGNANT
     Route: 051
     Dates: start: 20090508, end: 20090512
  23. ARRANON [Suspect]
     Active Substance: NELARABINE
     Dosage: 650 MG/M2, QD
     Route: 041
     Dates: start: 20090827, end: 20090831
  24. CYLOCIDE [Suspect]
     Active Substance: CYTARABINE
     Dosage: 75 MG/M2,
     Route: 051
     Dates: start: 20090802, end: 20090805
  25. LEUKERIN [Concomitant]
     Active Substance: MERCAPTOPURINE
     Indication: NEOPLASM MALIGNANT
     Route: 048
     Dates: start: 20090508, end: 20090512
  26. ATARAX [Concomitant]
     Active Substance: HYDROXYZINE HYDROCHLORIDE
     Indication: INSOMNIA
     Route: 051
     Dates: start: 20090606, end: 20090617
  27. GRAN [Concomitant]
     Active Substance: FILGRASTIM
     Indication: NEUTROPENIA
     Route: 041
     Dates: start: 20090706, end: 20090911

REACTIONS (11)
  - Vomiting [Recovering/Resolving]
  - Stomatitis [Recovered/Resolved]
  - Platelet count decreased [Recovering/Resolving]
  - Antithrombin III decreased [Recovering/Resolving]
  - Pyrexia [Recovering/Resolving]
  - Febrile neutropenia [Recovering/Resolving]
  - Alanine aminotransferase increased [Recovering/Resolving]
  - Aspartate aminotransferase increased [Recovering/Resolving]
  - Nausea [Recovering/Resolving]
  - Hyperbilirubinaemia [Recovering/Resolving]
  - Haemoglobin decreased [Recovering/Resolving]

NARRATIVE: CASE EVENT DATE: 20090615
